FAERS Safety Report 4834123-X (Version None)
Quarter: 2005Q4

REPORT INFORMATION
  Report Type: 
  Country: None (occurrence: None)
  Receive Date: 20051122
  Receipt Date: 20051115
  Transmission Date: 20060501
  Serious: Yes (Other)
  Sender: FDA-Public Use
  Company Number: PR-BRISTOL-MYERS SQUIBB COMPANY-13184452

PATIENT

DRUGS (2)
  1. ATAZANAVIR [Suspect]
  2. TRUVADA [Suspect]

REACTIONS (1)
  - HEPATIC FAILURE [None]
